FAERS Safety Report 4976808-0 (Version None)
Quarter: 2006Q2

REPORT INFORMATION
  Report Type: 
  Country: None (occurrence: None)
  Receive Date: 20060418
  Receipt Date: 20060418
  Transmission Date: 20061013
  Serious: Yes (Life-Threatening)
  Sender: FDA-Public Use
  Company Number: None

PATIENT
  Age: 12 Year
  Sex: Male
  Weight: 39.0093 kg

DRUGS (1)
  1. PAROXETINE HCL [Suspect]
     Indication: ANXIETY
     Dosage: 10MG   DAILY    PO
     Route: 048
     Dates: start: 20050105, end: 20060417

REACTIONS (10)
  - AGGRESSION [None]
  - ANGER [None]
  - APATHY [None]
  - HALLUCINATION [None]
  - INSOMNIA [None]
  - MALAISE [None]
  - PANIC ATTACK [None]
  - PERSONALITY CHANGE [None]
  - SUICIDAL BEHAVIOUR [None]
  - THERAPEUTIC RESPONSE UNEXPECTED WITH DRUG SUBSTITUTION [None]
